FAERS Safety Report 21643759 (Version 1)
Quarter: 2022Q4

REPORT INFORMATION
  Report Type: Spontaneous
  Country: US (occurrence: US)
  Receive Date: 20221125
  Receipt Date: 20221125
  Transmission Date: 20230112
  Serious: No
  Sender: FDA-Public Use
  Company Number: US-BIOVITRUM-2022US11977

PATIENT
  Sex: Female

DRUGS (3)
  1. KINERET [Suspect]
     Active Substance: ANAKINRA
     Indication: Rheumatoid arthritis
     Dates: start: 20211009
  2. KINERET [Suspect]
     Active Substance: ANAKINRA
     Dates: start: 20201120
  3. KINERET [Suspect]
     Active Substance: ANAKINRA
     Dates: start: 202009

REACTIONS (2)
  - Illness [Unknown]
  - Urinary tract infection [Unknown]
